FAERS Safety Report 19292811 (Version 3)
Quarter: 2021Q2

REPORT INFORMATION
  Report Type: Spontaneous
  Country: IT (occurrence: IT)
  Receive Date: 20210524
  Receipt Date: 20210617
  Transmission Date: 20210717
  Serious: Yes (Other)
  Sender: FDA-Public Use
  Company Number: NVSC2021IT114522

PATIENT
  Age: 34 Year
  Sex: Female

DRUGS (2)
  1. LAPATINIB [Suspect]
     Active Substance: LAPATINIB
     Indication: BREAST CANCER METASTATIC
     Dosage: 2500 MG, CYCLIC (21?DAY CYCLE OF L AT A DOSE OF 1,250 MG PER DAY)
     Route: 048
     Dates: start: 201908, end: 2019
  2. XELODA [Suspect]
     Active Substance: CAPECITABINE
     Indication: BREAST CANCER METASTATIC
     Dosage: 4000 MG/M2, CYCLIC (14?DAY COURSE OF C AT CYCLE ONSET AT A DOSE OF 2,000)
     Route: 048
     Dates: start: 201908, end: 2019

REACTIONS (3)
  - Palmar-plantar erythrodysaesthesia syndrome [Unknown]
  - Corneal epithelium defect [Recovering/Resolving]
  - Limbal stem cell deficiency [Recovering/Resolving]

NARRATIVE: CASE EVENT DATE: 2019
